FAERS Safety Report 24271038 (Version 2)
Quarter: 2024Q3

REPORT INFORMATION
  Report Type: Spontaneous
  Country: US (occurrence: US)
  Receive Date: 20240831
  Receipt Date: 20240926
  Transmission Date: 20241017
  Serious: Yes (Hospitalization)
  Sender: UROGEN PHARMA
  Company Number: US-UROGEN PHARMA LTD.-2024-UGN-000115

PATIENT

DRUGS (11)
  1. JELMYTO [Suspect]
     Active Substance: MITOMYCIN
     Indication: Ureteric cancer
     Dosage: 80 MILLIGRAM (INSTILLATION)
     Route: 065
     Dates: start: 20231103, end: 20231103
  2. JELMYTO [Suspect]
     Active Substance: MITOMYCIN
     Indication: Ureteric cancer
     Dosage: 80 MILLIGRAM (INSTILLATION)
     Route: 065
     Dates: start: 20231110, end: 20231110
  3. JELMYTO [Suspect]
     Active Substance: MITOMYCIN
     Dosage: 80 MILLIGRAM (INSTILLATION)
     Route: 065
     Dates: start: 20231117, end: 20231117
  4. JELMYTO [Suspect]
     Active Substance: MITOMYCIN
     Dosage: 80 MILLIGRAM (INSTILLATION)
     Route: 065
     Dates: start: 20231122, end: 20231122
  5. JELMYTO [Suspect]
     Active Substance: MITOMYCIN
     Dosage: 80 MILLIGRAM (INSTILLATION)
     Route: 065
     Dates: start: 20231201, end: 20231201
  6. JELMYTO [Suspect]
     Active Substance: MITOMYCIN
     Dosage: 80 MILLIGRAM (INSTILLATION)
     Route: 065
     Dates: start: 20231214, end: 20231214
  7. JELMYTO [Suspect]
     Active Substance: MITOMYCIN
     Dosage: 80 MILLIGRAM, ONCE A WEEK  (INSITILLATION)
     Dates: start: 20240717, end: 20240717
  8. JELMYTO [Suspect]
     Active Substance: MITOMYCIN
     Dosage: 80 MILLIGRAM, ONCE A WEEK  (INSITILLATION)
     Dates: start: 20240725, end: 20240725
  9. JELMYTO [Suspect]
     Active Substance: MITOMYCIN
     Dosage: 80 MILLIGRAM, ONCE A WEEK  (INSITILLATION)
     Dates: start: 20240801, end: 20240801
  10. JELMYTO [Suspect]
     Active Substance: MITOMYCIN
     Dosage: 80 MILLIGRAM, ONCE A WEEK  (INSITILLATION)
     Dates: start: 20240808, end: 20240808
  11. JELMYTO [Suspect]
     Active Substance: MITOMYCIN
     Dosage: 80 MILLIGRAM, ONCE A WEEK  (INSITILLATION)
     Dates: start: 20240910, end: 20240910

REACTIONS (4)
  - Complication associated with device [Not Recovered/Not Resolved]
  - Urinary tract infection [Not Recovered/Not Resolved]
  - Blood potassium increased [Unknown]
  - Blood creatinine increased [Unknown]

NARRATIVE: CASE EVENT DATE: 20240813
